FAERS Safety Report 8241673-5 (Version None)
Quarter: 2012Q1

REPORT INFORMATION
  Report Type: 
  Country: None (occurrence: None)
  Receive Date: 20120328
  Receipt Date: 20120321
  Transmission Date: 20120608
  Serious: Yes (Death)
  Sender: FDA-Public Use
  Company Number: TW-ABBOTT-12P-153-0909901-00

PATIENT
  Age: 30 Year
  Sex: Female
  Weight: 63 kg

DRUGS (7)
  1. GEMFIBROZIL [Concomitant]
     Indication: PRODUCT USED FOR UNKNOWN INDICATION
     Dates: start: 20110825, end: 20120205
  2. SENNAPUR [Concomitant]
     Indication: PRODUCT USED FOR UNKNOWN INDICATION
     Dates: start: 20110921, end: 20120205
  3. HALIN [Concomitant]
     Indication: PRODUCT USED FOR UNKNOWN INDICATION
     Dates: start: 20000601, end: 20120205
  4. CLOZARIL [Suspect]
     Indication: PSYCHOTIC DISORDER
     Route: 048
     Dates: start: 20001228, end: 20120205
  5. DEPAKENE [Suspect]
     Indication: AFFECTIVE DISORDER
     Dosage: 1 AT BEDTIME
     Route: 048
     Dates: start: 20031119, end: 20120205
  6. MAGNESIUM OXIDE [Concomitant]
     Indication: PRODUCT USED FOR UNKNOWN INDICATION
     Dates: start: 20110707, end: 20120205
  7. DEPAKENE [Suspect]
     Indication: AFFECTIVE DISORDER

REACTIONS (2)
  - DEATH [None]
  - SEPSIS [None]
